FAERS Safety Report 4349947-5 (Version None)
Quarter: 2004Q2

REPORT INFORMATION
  Report Type: 
  Country: None (occurrence: None)
  Receive Date: 20040426
  Receipt Date: 20040414
  Transmission Date: 20050107
  Serious: Yes (Hospitalization)
  Sender: FDA-Public Use
  Company Number: US-JNJFOC-20040303667

PATIENT
  Age: 24 Year
  Sex: Male
  Weight: 123.832 kg

DRUGS (5)
  1. RISPERDAL CONSTA [Suspect]
     Indication: SCHIZOPHRENIA
     Dosage: 50 MG, INTRA-MUSCULAR : 37.5 MG, INTRA-MUSCULAR
     Route: 030
     Dates: start: 20040212, end: 20040310
  2. RISPERDAL CONSTA [Suspect]
     Indication: SCHIZOPHRENIA
     Dosage: 50 MG, INTRA-MUSCULAR : 37.5 MG, INTRA-MUSCULAR
     Route: 030
     Dates: start: 20040311
  3. RISPERDAL [Suspect]
     Indication: PSYCHOTIC DISORDER
     Dosage: 8 MG , 2 IN 1 DAY, ORAL  : 2 MG, 1 IN 1 DAY , ORAL
     Route: 048
     Dates: start: 20020327, end: 20040311
  4. DEPAKOTE [Concomitant]
  5. COGENTIN [Concomitant]

REACTIONS (7)
  - AGGRESSION [None]
  - DEPRESSION [None]
  - EXTRAPYRAMIDAL DISORDER [None]
  - HOMICIDAL IDEATION [None]
  - INSOMNIA [None]
  - SUICIDAL IDEATION [None]
  - TREATMENT NONCOMPLIANCE [None]
